FAERS Safety Report 19007736 (Version 5)
Quarter: 2022Q4

REPORT INFORMATION
  Report Type: Spontaneous
  Country: JP (occurrence: JP)
  Receive Date: 20210315
  Receipt Date: 20221028
  Transmission Date: 20230113
  Serious: Yes (Death, Hospitalization, Other)
  Sender: FDA-Public Use
  Company Number: NVSJ2020JP014663

PATIENT
  Age: 3 Month
  Sex: Male
  Weight: 4.29 kg

DRUGS (14)
  1. ILARIS [Suspect]
     Active Substance: CANAKINUMAB
     Indication: Autoinflammation with infantile enterocolitis
     Dosage: UNK
     Route: 058
     Dates: start: 202009
  2. ILARIS [Suspect]
     Active Substance: CANAKINUMAB
     Dosage: 12 MG/KG
     Route: 058
     Dates: start: 20201030
  3. ILARIS [Suspect]
     Active Substance: CANAKINUMAB
     Dosage: 10 MG/KG
     Route: 058
     Dates: start: 20201120
  4. ILARIS [Suspect]
     Active Substance: CANAKINUMAB
     Dosage: 45 MG
     Route: 058
     Dates: start: 20201218
  5. ILARIS [Suspect]
     Active Substance: CANAKINUMAB
     Dosage: 45 MG
     Route: 058
     Dates: start: 20210115
  6. ILARIS [Suspect]
     Active Substance: CANAKINUMAB
     Dosage: 45 MG
     Route: 058
     Dates: start: 20210212
  7. ILARIS [Suspect]
     Active Substance: CANAKINUMAB
     Dosage: 75 MG
     Route: 058
     Dates: start: 20210312, end: 20210312
  8. ILARIS [Suspect]
     Active Substance: CANAKINUMAB
     Dosage: 82.5 MG
     Route: 058
     Dates: start: 20210409, end: 20210409
  9. ILARIS [Suspect]
     Active Substance: CANAKINUMAB
     Dosage: 82.5 MG
     Route: 058
     Dates: start: 20210507, end: 20210507
  10. CYCLOSPORINE [Suspect]
     Active Substance: CYCLOSPORINE
     Indication: Product used for unknown indication
     Dosage: UNK
     Route: 048
  11. PREDONINE [Concomitant]
     Active Substance: PREDNISOLONE
     Indication: Product used for unknown indication
     Dosage: 11 MG
     Route: 065
  12. ATOVAQUONE [Concomitant]
     Active Substance: ATOVAQUONE
     Indication: Product used for unknown indication
     Dosage: UNK
     Route: 065
  13. SULFAMETHOXAZOLE\TRIMETHOPRIM [Concomitant]
     Active Substance: SULFAMETHOXAZOLE\TRIMETHOPRIM
     Indication: Product used for unknown indication
     Dosage: UNK
     Route: 065
  14. DEXAMETHASONE [Concomitant]
     Active Substance: DEXAMETHASONE
     Indication: Product used for unknown indication
     Dosage: UNK
     Route: 065

REACTIONS (19)
  - Autoinflammation with infantile enterocolitis [Fatal]
  - Disease recurrence [Fatal]
  - Feeding disorder [Fatal]
  - Concomitant disease aggravated [Fatal]
  - Vomiting [Fatal]
  - Adrenal insufficiency [Fatal]
  - Pneumonia cytomegaloviral [Recovered/Resolved]
  - Dyspnoea [Recovering/Resolving]
  - Pneumocystis jirovecii pneumonia [Recovered/Resolved]
  - Vomiting [Recovered/Resolved]
  - Diarrhoea [Not Recovered/Not Resolved]
  - Tachycardia [Unknown]
  - Haematochezia [Unknown]
  - Concomitant disease aggravated [Unknown]
  - Pneumatosis intestinalis [Unknown]
  - Abdominal distension [Unknown]
  - Heart rate increased [Unknown]
  - Product use in unapproved indication [Unknown]
  - Product use issue [Unknown]

NARRATIVE: CASE EVENT DATE: 20201001
